FAERS Safety Report 9838985 (Version 1)
Quarter: 2013Q4

REPORT INFORMATION
  Report Type: Spontaneous
  Country: US (occurrence: None)
  Receive Date: 20131206
  Receipt Date: 20131206
  Transmission Date: 20140711
  Serious: Yes (Other)
  Sender: FDA-Public Use
  Company Number: 371757

PATIENT
  Age: 60 Year
  Sex: Female
  Weight: 68.9 kg

DRUGS (1)
  1. NOVOLOG [Suspect]
     Indication: TYPE 1 DIABETES MELLITUS
     Dosage: SUBCUTAN-PUMP
     Dates: start: 20121103, end: 20130220

REACTIONS (3)
  - Diabetic retinopathy [None]
  - Fluid retention [None]
  - Condition aggravated [None]
